FAERS Safety Report 22714307 (Version 4)
Quarter: 2024Q2

REPORT INFORMATION
  Report Type: Report from Study
  Country: US (occurrence: US)
  Receive Date: 20230718
  Receipt Date: 20240617
  Transmission Date: 20240716
  Serious: No
  Sender: FDA-Public Use
  Company Number: US-ACADIA PHARMACEUTICALS INC.-ACA-2023-PIM-002619

PATIENT
  Sex: Female

DRUGS (2)
  1. NUPLAZID [Suspect]
     Active Substance: PIMAVANSERIN TARTRATE
     Indication: Parkinson^s disease
     Dosage: 34 MILLIGRAM, QD (EVERY NIGHT AT BEDTIME)
     Route: 048
     Dates: start: 20230531
  2. NUPLAZID [Suspect]
     Active Substance: PIMAVANSERIN TARTRATE
     Dosage: 34 MILLIGRAM, QD (EVERY NIGHT AT BEDTIME)
     Route: 048

REACTIONS (10)
  - Product dose omission issue [Unknown]
  - Nonspecific reaction [Unknown]
  - Vomiting [Unknown]
  - Nausea [Unknown]
  - Hallucination [Unknown]
  - Confusional state [Unknown]
  - Hallucination [Unknown]
  - Oedema peripheral [Unknown]
  - Confusional state [Unknown]
  - Hallucination [Unknown]
